FAERS Safety Report 24378794 (Version 2)
Quarter: 2024Q4

REPORT INFORMATION
  Report Type: Spontaneous
  Country: FR (occurrence: FR)
  Receive Date: 20240930
  Receipt Date: 20241008
  Transmission Date: 20250115
  Serious: Yes (Hospitalization, Other)
  Sender: AUROBINDO
  Company Number: FR-002147023-NVSC2024FR184534

PATIENT
  Age: 70 Year
  Sex: Female
  Weight: 106 kg

DRUGS (4)
  1. ESCITALOPRAM [Suspect]
     Active Substance: ESCITALOPRAM OXALATE
     Indication: Pancreatic neuroendocrine tumour metastatic
     Dosage: 20 MILLIGRAM, ONCE A DAY
     Route: 065
  2. PAROXETINE [Suspect]
     Active Substance: PAROXETINE
     Indication: Pancreatic neuroendocrine tumour metastatic
     Dosage: 20 MILLIGRAM, ONCE A DAY
     Route: 065
  3. EVEROLIMUS [Suspect]
     Active Substance: EVEROLIMUS
     Indication: Pancreatic neuroendocrine tumour metastatic
     Dosage: 10 MILLIGRAM, ONCE A DAY
     Route: 065
  4. SUNITINIB [Suspect]
     Active Substance: SUNITINIB
     Indication: Pancreatic neuroendocrine tumour metastatic
     Dosage: 37.5 MILLIGRAM, ONCE A DAY
     Route: 065
     Dates: start: 202203

REACTIONS (9)
  - Hyperglycaemia [Unknown]
  - Hypertriglyceridaemia [Unknown]
  - Hypercholesterolaemia [Unknown]
  - Ketoacidosis [Unknown]
  - Dehydration [Unknown]
  - Weight decreased [Unknown]
  - Asthenia [Unknown]
  - Sarcopenia [Unknown]
  - General physical health deterioration [Unknown]

NARRATIVE: CASE EVENT DATE: 20230301
